FAERS Safety Report 9419003 (Version 1)
Quarter: 2013Q3

REPORT INFORMATION
  Report Type: Report from Study
  Country: US (occurrence: US)
  Receive Date: 20130725
  Receipt Date: 20130725
  Transmission Date: 20140515
  Serious: Yes (Other)
  Sender: FDA-Public Use
  Company Number: PHEH2013US015523

PATIENT
  Age: 43 Year
  Sex: Female

DRUGS (2)
  1. TOBI [Suspect]
     Indication: BRONCHIECTASIS
     Dosage: 300 UKN, BID
  2. TOBI [Suspect]
     Indication: CULTURE POSITIVE

REACTIONS (2)
  - Escherichia bacteraemia [Not Recovered/Not Resolved]
  - Condition aggravated [Not Recovered/Not Resolved]
